FAERS Safety Report 16847365 (Version 1)
Quarter: 2019Q3

REPORT INFORMATION
  Report Type: Spontaneous
  Country: US (occurrence: US)
  Receive Date: 20190924
  Receipt Date: 20190924
  Transmission Date: 20191005
  Serious: No
  Sender: FDA-Public Use
  Company Number: US-GILEAD-2019-0430203

PATIENT
  Age: 71 Year
  Sex: Male

DRUGS (2)
  1. RANEXA [Suspect]
     Active Substance: RANOLAZINE
     Indication: PRODUCT USED FOR UNKNOWN INDICATION
     Dosage: 500 MG, BID
     Route: 048
     Dates: start: 201908, end: 20190923
  2. RANEXA [Suspect]
     Active Substance: RANOLAZINE
     Dosage: 1000 UNK
     Route: 065
     Dates: start: 20190924

REACTIONS (1)
  - Constipation [Not Recovered/Not Resolved]
